FAERS Safety Report 16432441 (Version 4)
Quarter: 2019Q3

REPORT INFORMATION
  Report Type: Report from Study
  Country: US (occurrence: US)
  Receive Date: 20190614
  Receipt Date: 20190904
  Transmission Date: 20191004
  Serious: Yes (Hospitalization, Other)
  Sender: FDA-Public Use
  Company Number: US-ACTELION-A-NJ2019-186963

PATIENT
  Age: 47 Year
  Sex: Male
  Weight: 84.35 kg

DRUGS (15)
  1. IMODIUM [Concomitant]
     Active Substance: LOPERAMIDE HYDROCHLORIDE
     Dosage: UNK
  2. EFFEXOR [Concomitant]
     Active Substance: VENLAFAXINE HYDROCHLORIDE
     Dosage: UNK
  3. UPTRAVI [Concomitant]
     Active Substance: SELEXIPAG
     Route: 048
  4. NEURONTIN [Concomitant]
     Active Substance: GABAPENTIN
     Dosage: UNK
  5. VELETRI [Suspect]
     Active Substance: EPOPROSTENOL
     Dosage: 24 NG/KG, PER MIN
     Route: 042
  6. LETAIRIS [Concomitant]
     Active Substance: AMBRISENTAN
  7. BUMEX [Concomitant]
     Active Substance: BUMETANIDE
     Dosage: UNK
  8. PROTONIX [Concomitant]
     Active Substance: PANTOPRAZOLE SODIUM
     Dosage: UNK
  9. VELETRI [Suspect]
     Active Substance: EPOPROSTENOL
     Dosage: 42 NG/KG, PER MIN
     Route: 042
  10. WARFARIN [Concomitant]
     Active Substance: WARFARIN
  11. SYMBICORT [Concomitant]
     Active Substance: BUDESONIDE\FORMOTEROL FUMARATE DIHYDRATE
  12. VELETRI [Suspect]
     Active Substance: EPOPROSTENOL
     Indication: PULMONARY HYPERTENSION
     Dosage: 14 NG/KG, PER MIN
     Route: 042
  13. VELETRI [Suspect]
     Active Substance: EPOPROSTENOL
     Dosage: 16 NG/KG, PER MIN
     Route: 042
  14. ADEMPAS [Concomitant]
     Active Substance: RIOCIGUAT
  15. SPIRIVA [Concomitant]
     Active Substance: TIOTROPIUM BROMIDE MONOHYDRATE
     Dosage: UNK

REACTIONS (17)
  - Constipation [Unknown]
  - Diarrhoea [Unknown]
  - Weight decreased [Unknown]
  - Malaise [Unknown]
  - Pulmonary hypertension [Recovered/Resolved]
  - Hypotension [Unknown]
  - Ascites [Recovered/Resolved]
  - Headache [Unknown]
  - Cardiac failure [Recovered/Resolved]
  - Paracentesis [Recovered/Resolved]
  - Pain in jaw [Unknown]
  - Somnolence [Unknown]
  - Fall [Unknown]
  - Hyperkalaemia [Recovered/Resolved]
  - Condition aggravated [Recovered/Resolved]
  - Disease progression [Unknown]
  - Abdominal distension [Unknown]

NARRATIVE: CASE EVENT DATE: 20190321
